FAERS Safety Report 5648642-X (Version None)
Quarter: 2008Q1

REPORT INFORMATION
  Report Type: 
  Country: None (occurrence: None)
  Receive Date: 20080304
  Receipt Date: 20080212
  Transmission Date: 20080703
  Serious: Yes (Death)
  Sender: FDA-Public Use
  Company Number: A0699236A

PATIENT
  Age: 26 Year
  Sex: Male
  Weight: 101.8 kg

DRUGS (6)
  1. ADVAIR DISKUS 100/50 [Suspect]
     Indication: ASTHMA
     Dosage: 1PUFF TWICE PER DAY
     Route: 055
     Dates: start: 20030109, end: 20060521
  2. TUSSIONEX [Concomitant]
     Dates: start: 20030101
  3. MEDROL [Concomitant]
     Dates: start: 20030101
  4. SINGULAIR [Concomitant]
     Dates: start: 20030210
  5. COMBIVENT [Concomitant]
     Dates: start: 20030410
  6. STEROID [Concomitant]
     Dates: start: 20030410

REACTIONS (7)
  - ANOXIC ENCEPHALOPATHY [None]
  - BRONCHOPNEUMONIA [None]
  - CARDIOMEGALY [None]
  - DYSPNOEA [None]
  - LUNG HYPERINFLATION [None]
  - RESPIRATORY ARREST [None]
  - WHEEZING [None]
